FAERS Safety Report 17816205 (Version 1)
Quarter: 2020Q2

REPORT INFORMATION
  Report Type: Spontaneous
  Country: US (occurrence: US)
  Receive Date: 20200522
  Receipt Date: 20200522
  Transmission Date: 20200714
  Serious: Yes (Other)
  Sender: FDA-Public Use
  Company Number: None

PATIENT
  Age: 56 Year
  Sex: Female
  Weight: 119.7 kg

DRUGS (22)
  1. BACLOFEN. [Concomitant]
     Active Substance: BACLOFEN
     Dates: start: 20200502, end: 20200508
  2. MIDAZOLAM. [Concomitant]
     Active Substance: MIDAZOLAM
     Dates: start: 20200513
  3. FLUCONAZOLE. [Concomitant]
     Active Substance: FLUCONAZOLE
     Dates: start: 20200520
  4. FUROSEMIDE. [Concomitant]
     Active Substance: FUROSEMIDE
     Dates: start: 20200508, end: 20200518
  5. TOCILIZUMAB. [Concomitant]
     Active Substance: TOCILIZUMAB
     Dates: start: 20200512, end: 20200512
  6. PROPFOL [Concomitant]
     Active Substance: PROPOFOL
     Dates: start: 20200512
  7. ACETAMINOPHEN. [Concomitant]
     Active Substance: ACETAMINOPHEN
     Dates: start: 20200504
  8. DOXYCYCLINE. [Concomitant]
     Active Substance: DOXYCYCLINE
     Dates: start: 20200504, end: 20200511
  9. HEPARIN [Concomitant]
     Active Substance: HEPARIN SODIUM
     Dates: start: 20200513
  10. MEROPENEM. [Concomitant]
     Active Substance: MEROPENEM
     Dates: start: 20200518
  11. NOREPINEPHRINE. [Concomitant]
     Active Substance: NOREPINEPHRINE
     Dates: start: 20200513
  12. REMDESIVIR. [Suspect]
     Active Substance: REMDESIVIR
     Indication: COVID-19
     Route: 040
     Dates: start: 20200514, end: 20200520
  13. ALBUTEROL-IPRATROPIUM [Concomitant]
     Active Substance: ALBUTEROL\IPRATROPIUM
     Dates: start: 20200504, end: 20200512
  14. FERROUS SULFATE. [Concomitant]
     Active Substance: FERROUS SULFATE
     Dates: start: 20200506, end: 20200512
  15. FLUCONAZOLE. [Concomitant]
     Active Substance: FLUCONAZOLE
     Dates: start: 20200514, end: 20200514
  16. CEFEPIME [Concomitant]
     Active Substance: CEFEPIME HYDROCHLORIDE
     Dates: start: 20200509, end: 20200518
  17. CEFTRIAXONE. [Concomitant]
     Active Substance: CEFTRIAXONE
     Dates: start: 20200504, end: 20200509
  18. FOLIC ACID. [Concomitant]
     Active Substance: FOLIC ACID
     Dates: start: 20200504
  19. ACETAMINOPHEN-HYDROCODONE [Concomitant]
     Active Substance: ACETAMINOPHEN\HYDROCODONE
     Dates: start: 20200505
  20. DEXMEDETOMIDINE. [Concomitant]
     Active Substance: DEXMEDETOMIDINE
     Dates: start: 20200512
  21. VANCOMYCIN [Concomitant]
     Active Substance: VANCOMYCIN
     Dates: start: 20200505, end: 20200508
  22. APIXABAN [Concomitant]
     Active Substance: APIXABAN
     Dates: start: 20200504, end: 20200513

REACTIONS (2)
  - Renal impairment [None]
  - Blood creatinine increased [None]

NARRATIVE: CASE EVENT DATE: 20200521
